FAERS Safety Report 24250977 (Version 1)
Quarter: 2024Q3

REPORT INFORMATION
  Report Type: Spontaneous
  Country: US (occurrence: None)
  Receive Date: 20240825
  Receipt Date: 20240825
  Transmission Date: 20241017
  Serious: No
  Sender: Public
  Company Number: None

PATIENT
  Age: 53 Year
  Sex: Female
  Weight: 75.15 kg

DRUGS (9)
  1. ZEPBOUND [Suspect]
     Active Substance: TIRZEPATIDE
     Indication: Overweight
  2. PROZAC [Concomitant]
     Active Substance: FLUOXETINE HYDROCHLORIDE
  3. CYMBALTA [Concomitant]
     Active Substance: DULOXETINE HYDROCHLORIDE
  4. LISINOPRIL [Concomitant]
     Active Substance: LISINOPRIL
  5. Amlodapine [Concomitant]
  6. FISH OIL [Concomitant]
     Active Substance: FISH OIL
  7. D [Concomitant]
  8. CALCIUM [Concomitant]
     Active Substance: CALCIUM
  9. MULTI [Concomitant]

REACTIONS (4)
  - Injection site reaction [None]
  - Injection site erythema [None]
  - Injection site pain [None]
  - Injection site swelling [None]

NARRATIVE: CASE EVENT DATE: 20240818
